FAERS Safety Report 24284905 (Version 1)
Quarter: 2024Q3

REPORT INFORMATION
  Report Type: Spontaneous
  Country: US (occurrence: None)
  Receive Date: 20240830
  Receipt Date: 20240830
  Transmission Date: 20241017
  Serious: Yes (Other)
  Sender: Public
  Company Number: None

PATIENT
  Age: 76 Year
  Sex: Female

DRUGS (1)
  1. LENALIDOMIDE [Suspect]
     Active Substance: LENALIDOMIDE
     Indication: Plasma cell myeloma
     Dosage: 5MG QD X 21 DAYS ON AND 14 DAYS OFF?

REACTIONS (4)
  - Diarrhoea [None]
  - Syncope [None]
  - Urinary tract infection [None]
  - Seasonal allergy [None]
